FAERS Safety Report 5256480-5 (Version None)
Quarter: 2007Q1

REPORT INFORMATION
  Report Type: 
  Country: None (occurrence: None)
  Receive Date: 20070306
  Receipt Date: 20070302
  Transmission Date: 20070707
  Serious: Yes (Hospitalization)
  Sender: FDA-Public Use
  Company Number: BR-GLAXOSMITHKLINE-A0641954A

PATIENT
  Age: 75 Year
  Sex: Female
  Weight: 70 kg

DRUGS (5)
  1. SERETIDE [Suspect]
     Indication: CHEST DISCOMFORT
     Dates: start: 20020101
  2. PREDNISONE [Concomitant]
     Dates: start: 19970101
  3. LOSARTAN POTASSIUM [Concomitant]
     Dates: start: 19700101
  4. PURAN T4 [Concomitant]
     Dates: start: 19970101
  5. DILTIAZEM [Concomitant]
     Dates: start: 20070101

REACTIONS (2)
  - CALCULUS URINARY [None]
  - MUSCLE SPASMS [None]
